FAERS Safety Report 6099802-8 (Version None)
Quarter: 2009Q1

REPORT INFORMATION
  Report Type: 
  Country: None (occurrence: None)
  Receive Date: 20090303
  Receipt Date: 20090220
  Transmission Date: 20090719
  Serious: Yes (Hospitalization, Other)
  Sender: FDA-Public Use
  Company Number: PHEH2006US15259

PATIENT
  Sex: Male

DRUGS (3)
  1. AREDIA [Suspect]
     Dosage: UNK MG, UNK
  2. ZOMETA [Suspect]
     Indication: MULTIPLE MYELOMA
  3. CHEMOTHERAPEUTICS NOS [Concomitant]
     Dosage: UNK
     Dates: start: 20001201

REACTIONS (17)
  - ANXIETY [None]
  - BONE DISORDER [None]
  - CARDIAC FAILURE CONGESTIVE [None]
  - DECREASED INTEREST [None]
  - DENTAL CARIES [None]
  - DENTAL PULP DISORDER [None]
  - ENDODONTIC PROCEDURE [None]
  - GENERAL PHYSICAL HEALTH DETERIORATION [None]
  - IMPLANTABLE DEFIBRILLATOR INSERTION [None]
  - LUDWIG ANGINA [None]
  - ORAL PAIN [None]
  - OSTEONECROSIS [None]
  - PAIN [None]
  - PAIN IN JAW [None]
  - SENSITIVITY OF TEETH [None]
  - TOOTH EXTRACTION [None]
  - TOOTH FRACTURE [None]
